FAERS Safety Report 24007239 (Version 1)
Quarter: 2024Q2

REPORT INFORMATION
  Report Type: Report from Study
  Country: CA (occurrence: CA)
  Receive Date: 20240624
  Receipt Date: 20240624
  Transmission Date: 20240716
  Serious: Yes (Hospitalization, Other)
  Sender: FDA-Public Use
  Company Number: CA-ABBVIE-5811744

PATIENT
  Sex: Male

DRUGS (1)
  1. SKYRIZI [Suspect]
     Active Substance: RISANKIZUMAB-RZAA
     Indication: Crohn^s disease
     Route: 058
     Dates: start: 20230428

REACTIONS (7)
  - Intestinal perforation [Unknown]
  - Thrombosis [Unknown]
  - Candida infection [Unknown]
  - Pancreatitis [Unknown]
  - Pancreatic haemorrhage [Unknown]
  - Necrosis [Unknown]
  - Haemorrhage [Unknown]
